FAERS Safety Report 4367167-5 (Version None)
Quarter: 2004Q2

REPORT INFORMATION
  Report Type: 
  Country: None (occurrence: None)
  Receive Date: 20040528
  Receipt Date: 20040507
  Transmission Date: 20050107
  Serious: Yes (Other)
  Sender: FDA-Public Use
  Company Number: BR-ROCHE-367171

PATIENT
  Age: 30 Year
  Sex: Female

DRUGS (4)
  1. VALIUM [Suspect]
     Indication: ANXIETY
     Dosage: PRESCRIBED DOSAGE - 5 MG DAILY.
     Route: 048
     Dates: start: 20040315
  2. NOCTAL [Concomitant]
     Indication: INSOMNIA
     Route: 048
     Dates: start: 20040315, end: 20040415
  3. PROPRANOLOL [Concomitant]
     Indication: ANXIETY
     Route: 048
  4. TAPAZOLE [Concomitant]
     Indication: HYPERTHYROIDISM
     Route: 048

REACTIONS (6)
  - GALACTORRHOEA [None]
  - HIRSUTISM [None]
  - HYPERPROLACTINAEMIA [None]
  - MEDICATION ERROR [None]
  - OVERDOSE [None]
  - WEIGHT INCREASED [None]
